FAERS Safety Report 21230420 (Version 3)
Quarter: 2022Q3

REPORT INFORMATION
  Report Type: Report from Study
  Country: US (occurrence: US)
  Receive Date: 20220818
  Receipt Date: 20220916
  Transmission Date: 20221027
  Serious: Yes (Hospitalization)
  Sender: FDA-Public Use
  Company Number: US-BoehringerIngelheim-2022-BI-186444

PATIENT
  Age: 17 Year
  Sex: Female
  Weight: 37.3 kg

DRUGS (22)
  1. NINTEDANIB [Suspect]
     Active Substance: NINTEDANIB
     Indication: Interstitial lung disease
     Route: 048
     Dates: start: 20220420, end: 20220805
  2. NINTEDANIB [Suspect]
     Active Substance: NINTEDANIB
  3. ALBUTEROL [Concomitant]
     Active Substance: ALBUTEROL
     Indication: Interstitial lung disease
     Dosage: 2 PUFFS
     Route: 055
  4. CYPROHEPTADINE [Concomitant]
     Active Substance: CYPROHEPTADINE
     Indication: Interstitial lung disease
     Dosage: G-TUBE
  5. ESTRADIOL [Concomitant]
     Active Substance: ESTRADIOL
     Indication: Delayed puberty
     Dosage: DOSE-0.05
     Route: 062
  6. HYDROCORTISONE SODIUM SUCCINATE [Concomitant]
     Active Substance: HYDROCORTISONE SODIUM SUCCINATE
     Indication: Interstitial lung disease
     Route: 030
  7. HYDROXYCHLOROQUINE [Concomitant]
     Active Substance: HYDROXYCHLOROQUINE
     Indication: Interstitial lung disease
     Route: 048
  8. LANSOPRAZOLE [Concomitant]
     Active Substance: LANSOPRAZOLE
     Indication: Prophylaxis
     Route: 048
  9. MYCOPHENOLIC ACID [Concomitant]
     Active Substance: MYCOPHENOLIC ACID
     Indication: Interstitial lung disease
     Route: 048
  10. PREDNISOLONE [Concomitant]
     Active Substance: PREDNISOLONE
     Indication: Interstitial lung disease
     Route: 048
  11. AZITHROMYCIN ANHYDROUS [Concomitant]
     Active Substance: AZITHROMYCIN ANHYDROUS
     Indication: Interstitial lung disease
  12. CARAFATE [Concomitant]
     Active Substance: SUCRALFATE
     Indication: Abdominal pain
     Route: 048
  13. BACLOFEN [Concomitant]
     Active Substance: BACLOFEN
     Indication: Back pain
     Route: 048
  14. BARICITINIB [Concomitant]
     Active Substance: BARICITINIB
     Indication: Arthralgia
     Route: 048
  15. PEPTO-BISMOL [Concomitant]
     Active Substance: BISMUTH SUBSALICYLATE
     Indication: Abdominal pain
     Route: 048
  16. salonpas menthyl [Concomitant]
     Indication: Back pain
     Route: 062
  17. CBD rub [Concomitant]
     Indication: Back pain
     Route: 061
  18. ADVIL [Concomitant]
     Active Substance: IBUPROFEN
     Indication: Back pain
     Dosage: 400 MILLIGRAM
     Route: 048
  19. TRAMADOL [Concomitant]
     Active Substance: TRAMADOL
     Indication: Back pain
     Route: 048
  20. TYLENOL [Concomitant]
     Active Substance: ACETAMINOPHEN
     Indication: Back pain
     Route: 048
  21. MIDOL COMPLETE [Concomitant]
     Active Substance: ACETAMINOPHEN\CAFFEINE\PYRILAMINE MALEATE
     Indication: Dysmenorrhoea
     Dosage: 2 TABS
     Route: 048
  22. AMOXICILLIN [Concomitant]
     Active Substance: AMOXICILLIN
     Indication: Product used for unknown indication
     Dates: start: 20220801

REACTIONS (1)
  - Hepatitis [Recovered/Resolved]

NARRATIVE: CASE EVENT DATE: 20220805
